FAERS Safety Report 10882008 (Version 2)
Quarter: 2015Q2

REPORT INFORMATION
  Report Type: Spontaneous
  Country: CO (occurrence: CO)
  Receive Date: 20150303
  Receipt Date: 20150512
  Transmission Date: 20150821
  Serious: Yes (Hospitalization)
  Sender: FDA-Public Use
  Company Number: CO-PFIZER INC-2015074014

PATIENT
  Age: 41 Year
  Sex: Male

DRUGS (2)
  1. RAPAMUNE [Suspect]
     Active Substance: SIROLIMUS
     Indication: PROPHYLAXIS AGAINST TRANSPLANT REJECTION
     Dosage: 1 MG, 2X/DAY
     Route: 048
     Dates: start: 2010
  2. MYCOPHENOLATE MOFETIL. [Suspect]
     Active Substance: MYCOPHENOLATE MOFETIL
     Dosage: UNK
     Dates: start: 2013

REACTIONS (8)
  - Cholelithiasis [Not Recovered/Not Resolved]
  - Productive cough [Not Recovered/Not Resolved]
  - Acne [Recovering/Resolving]
  - Acne [Recovering/Resolving]
  - Discomfort [Not Recovered/Not Resolved]
  - Headache [Recovering/Resolving]
  - Urethritis noninfective [Not Recovered/Not Resolved]
  - Diarrhoea [Recovered/Resolved]

NARRATIVE: CASE EVENT DATE: 2010
